FAERS Safety Report 12611394 (Version 1)
Quarter: 2016Q3

REPORT INFORMATION
  Report Type: Spontaneous
  Country: US (occurrence: US)
  Receive Date: 20160801
  Receipt Date: 20160801
  Transmission Date: 20161109
  Serious: Yes (Other)
  Sender: FDA-Public Use
  Company Number: US-AMGEN-USASP2016097158

PATIENT
  Age: 59 Year
  Sex: Male

DRUGS (3)
  1. PAMIDRONATE [Concomitant]
     Active Substance: PAMIDRONATE DISODIUM
  2. ZOLEDRONIC ACID. [Concomitant]
     Active Substance: ZOLEDRONIC ACID
     Indication: HYPERCALCAEMIA
  3. SENSIPAR [Suspect]
     Active Substance: CINACALCET HYDROCHLORIDE
     Indication: HYPERCALCAEMIA
     Dosage: 90 MG, UNK
     Route: 065

REACTIONS (6)
  - Alopecia [Unknown]
  - Spinal disorder [Unknown]
  - Hypertension [Unknown]
  - Drug effect incomplete [Unknown]
  - Metastases to lung [Unknown]
  - Blood calcium increased [Recovered/Resolved]
